FAERS Safety Report 12433043 (Version 1)
Quarter: 2016Q2

REPORT INFORMATION
  Report Type: Report from Study
  Country: BR (occurrence: BR)
  Receive Date: 20160603
  Receipt Date: 20160603
  Transmission Date: 20160815
  Serious: Yes (Hospitalization, Other)
  Sender: FDA-Public Use
  Company Number: BR-EMD SERONO-8087053

PATIENT
  Age: 39 Year
  Sex: Female

DRUGS (2)
  1. REBIF [Suspect]
     Active Substance: INTERFERON BETA-1A
     Indication: MULTIPLE SCLEROSIS
     Route: 058
     Dates: start: 20111122, end: 201605
  2. ADVIL [Concomitant]
     Active Substance: IBUPROFEN
     Indication: PRODUCT USED FOR UNKNOWN INDICATION
     Dosage: STRENGTH: 400 MILLIGRAM

REACTIONS (9)
  - Mediastinum neoplasm [Recovering/Resolving]
  - Hilar lymphadenopathy [Recovering/Resolving]
  - Meningitis [Recovering/Resolving]
  - Pneumonia [Recovering/Resolving]
  - Spinal osteoarthritis [Recovering/Resolving]
  - Tuberculosis [Recovering/Resolving]
  - Lymphadenopathy mediastinal [Recovering/Resolving]
  - Thrombosis [Recovering/Resolving]
  - Fatigue [Unknown]

NARRATIVE: CASE EVENT DATE: 2016
